FAERS Safety Report 8849712 (Version 1)
Quarter: 2012Q4

REPORT INFORMATION
  Report Type: 
  Country: CA (occurrence: CA)
  Receive Date: 20121019
  Receipt Date: 20121019
  Transmission Date: 20130627
  Serious: Yes (Other)
  Sender: FDA-Public Use
  Company Number: CA-BAYER-2012-106419

PATIENT
  Age: 49 Year
  Sex: Female

DRUGS (1)
  1. MIRENA [Suspect]
     Indication: MENORRHAGIA
     Dosage: Daily dose 20 ?g
     Route: 015
     Dates: start: 20120827, end: 20120912

REACTIONS (2)
  - Device expulsion [Recovered/Resolved]
  - Device deployment issue [None]
